FAERS Safety Report 17707303 (Version 4)
Quarter: 2022Q4

REPORT INFORMATION
  Report Type: Spontaneous
  Country: US (occurrence: US)
  Receive Date: 20200424
  Receipt Date: 20221005
  Transmission Date: 20230113
  Serious: Yes (Other)
  Sender: FDA-Public Use
  Company Number: US-TAKEDA-2020TUS019724

PATIENT

DRUGS (68)
  1. PROTONIX [Suspect]
     Active Substance: PANTOPRAZOLE SODIUM
     Indication: Gastrooesophageal reflux disease
     Dosage: UNK
     Route: 048
     Dates: start: 199701, end: 201701
  2. PROTONIX [Suspect]
     Active Substance: PANTOPRAZOLE SODIUM
     Dosage: 40 MILLIGRAM, QD
     Route: 048
     Dates: start: 2000, end: 2017
  3. PREVACID [Suspect]
     Active Substance: LANSOPRAZOLE
     Indication: Gastrooesophageal reflux disease
     Dosage: UNK
     Route: 048
     Dates: start: 199701, end: 201701
  4. PREVACID [Suspect]
     Active Substance: LANSOPRAZOLE
     Dosage: UNK UNK, QD
     Route: 048
     Dates: start: 1997, end: 2017
  5. PREVACID [Suspect]
     Active Substance: LANSOPRAZOLE
     Dosage: 30 MILLIGRAM
     Route: 048
  6. DEXILANT [Suspect]
     Active Substance: DEXLANSOPRAZOLE
     Indication: Gastrooesophageal reflux disease
     Dosage: UNK
     Route: 048
     Dates: start: 199701, end: 201701
  7. DEXILANT [Suspect]
     Active Substance: DEXLANSOPRAZOLE
     Dosage: 60 MILLIGRAM, QD
     Route: 048
     Dates: start: 2009
  8. NEXIUM [Suspect]
     Active Substance: ESOMEPRAZOLE MAGNESIUM
     Indication: Gastrooesophageal reflux disease
     Dosage: UNK
     Route: 048
     Dates: start: 199701, end: 201701
  9. NEXIUM [Suspect]
     Active Substance: ESOMEPRAZOLE MAGNESIUM
     Dosage: UNK UNK, QD
     Route: 048
     Dates: start: 2001, end: 2019
  10. NEXIUM [Suspect]
     Active Substance: ESOMEPRAZOLE MAGNESIUM
     Dosage: 20 MILLIGRAM
     Route: 048
  11. PRILOSEC [Suspect]
     Active Substance: OMEPRAZOLE MAGNESIUM
     Indication: Gastrooesophageal reflux disease
     Dosage: UNK
     Route: 048
     Dates: start: 199701, end: 201701
  12. PRILOSEC [Suspect]
     Active Substance: OMEPRAZOLE MAGNESIUM
     Dosage: 20 MILLIGRAM, QD
     Route: 048
     Dates: start: 1997, end: 2017
  13. OMEPRAZOLE [Suspect]
     Active Substance: OMEPRAZOLE
     Indication: Gastrooesophageal reflux disease
     Dosage: UNK
     Route: 048
     Dates: start: 199701, end: 201701
  14. OMEPRAZOLE [Suspect]
     Active Substance: OMEPRAZOLE
     Dosage: 20 MILLIGRAM, QD
     Route: 048
     Dates: start: 2002, end: 2003
  15. OMEPRAZOLE [Suspect]
     Active Substance: OMEPRAZOLE
     Dosage: UNK
     Route: 048
     Dates: start: 2003, end: 2017
  16. OMEPRAZOLE MAGNESIUM [Suspect]
     Active Substance: OMEPRAZOLE MAGNESIUM
     Indication: Gastrooesophageal reflux disease
     Dosage: UNK
     Route: 048
     Dates: start: 199701, end: 201701
  17. OMEPRAZOLE MAGNESIUM [Suspect]
     Active Substance: OMEPRAZOLE MAGNESIUM
     Dosage: UNK
     Route: 048
     Dates: start: 2003, end: 2017
  18. ACIPHEX [Suspect]
     Active Substance: RABEPRAZOLE SODIUM
     Indication: Gastrooesophageal reflux disease
     Dosage: UNK
     Route: 048
  19. AMLODIPINE [Concomitant]
     Active Substance: AMLODIPINE BESYLATE
     Indication: Blood pressure increased
     Dosage: UNK
     Dates: start: 2010
  20. ATORVASTATIN [Concomitant]
     Active Substance: ATORVASTATIN
     Indication: Blood cholesterol increased
     Dosage: UNK
  21. CLONIDINE [Concomitant]
     Active Substance: CLONIDINE
     Indication: Blood pressure increased
     Dosage: UNK
     Dates: start: 2015, end: 2017
  22. CIPROFLOXACIN [Concomitant]
     Active Substance: CIPROFLOXACIN
     Indication: Infection
     Dosage: UNK
     Dates: start: 2012, end: 2016
  23. DILAUDID [Concomitant]
     Active Substance: HYDROMORPHONE HYDROCHLORIDE
     Indication: Back pain
     Dosage: UNK
     Dates: start: 2009
  24. LOPRESSOR [Concomitant]
     Active Substance: METOPROLOL TARTRATE
     Indication: Blood pressure increased
     Dosage: UNK
     Dates: start: 2009
  25. LISINOPRIL [Concomitant]
     Active Substance: LISINOPRIL
     Indication: Blood pressure increased
     Dosage: UNK
     Dates: start: 2006, end: 2016
  26. MAALOX ANTACID [Concomitant]
     Active Substance: ALUMINUM HYDROXIDE\DIMETHICONE\MAGNESIUM HYDROXIDE
     Indication: Antacid therapy
     Dosage: UNK
     Dates: start: 1970, end: 1976
  27. MYLANTA [Concomitant]
     Active Substance: ALUMINUM HYDROXIDE\DIMETHICONE\MAGNESIUM HYDROXIDE
     Indication: Antacid therapy
     Dosage: UNK
     Dates: start: 1970, end: 1976
  28. LIPITOR [Concomitant]
     Active Substance: ATORVASTATIN CALCIUM
     Indication: Blood cholesterol increased
     Dosage: UNK
     Dates: start: 2010
  29. BENTYL [Concomitant]
     Active Substance: DICYCLOMINE HYDROCHLORIDE
     Indication: Abdominal discomfort
     Dosage: UNK
     Dates: start: 2017
  30. NORVASC [Concomitant]
     Active Substance: AMLODIPINE BESYLATE
     Indication: Chest pain
     Dosage: UNK
     Dates: start: 2006, end: 2009
  31. VITAMIN B12 [Concomitant]
     Active Substance: CYANOCOBALAMIN
     Indication: Anaemia
     Dosage: UNK
     Dates: start: 2019
  32. AXID [Concomitant]
     Active Substance: NIZATIDINE
  33. ZANTAC [Concomitant]
     Active Substance: RANITIDINE HYDROCHLORIDE
  34. PEPCID [Concomitant]
     Active Substance: FAMOTIDINE
     Dosage: UNK
     Dates: start: 2011
  35. PROZAC [Concomitant]
     Active Substance: FLUOXETINE HYDROCHLORIDE
     Indication: Depression
     Dosage: UNK
     Dates: start: 2018, end: 2020
  36. PROZAC [Concomitant]
     Active Substance: FLUOXETINE HYDROCHLORIDE
     Indication: Anxiety
  37. ZOFRAN [Concomitant]
     Active Substance: ONDANSETRON HYDROCHLORIDE
     Indication: Nausea
     Dosage: UNK
     Dates: start: 2014
  38. ZOFRAN [Concomitant]
     Active Substance: ONDANSETRON HYDROCHLORIDE
     Dosage: UNK
     Dates: start: 2017
  39. ASPIRIN [Concomitant]
     Active Substance: ASPIRIN
     Indication: Pain
     Dosage: UNK
     Dates: start: 2014
  40. ASPIRIN [Concomitant]
     Active Substance: ASPIRIN
     Dosage: UNK
     Dates: start: 2017
  41. IBUPROFEN [Concomitant]
     Active Substance: IBUPROFEN
     Indication: Pyrexia
     Dosage: UNK
     Dates: start: 1988
  42. ADVIL [Concomitant]
     Active Substance: IBUPROFEN
     Indication: Analgesic therapy
  43. VITAMIN E [Concomitant]
     Active Substance: .ALPHA.-TOCOPHEROL
     Indication: Immune disorder prophylaxis
     Dosage: UNK
     Dates: start: 2019
  44. VITAMIN D3 [Concomitant]
     Active Substance: CHOLECALCIFEROL
     Indication: Prophylaxis
     Dosage: UNK
     Dates: start: 2019
  45. LORAZEPAM [Suspect]
     Active Substance: LORAZEPAM
  46. IRON [Suspect]
     Active Substance: IRON
  47. METFORMIN [Suspect]
     Active Substance: METFORMIN HYDROCHLORIDE
  48. IRON [Suspect]
     Active Substance: IRON
  49. METFORMIN [Suspect]
     Active Substance: METFORMIN HYDROCHLORIDE
  50. METOPROLOL [Suspect]
     Active Substance: METOPROLOL
  51. CALCIUM [Suspect]
     Active Substance: CALCIUM
  52. METRONIDAZOLE [Suspect]
     Active Substance: METRONIDAZOLE
  53. METFORMIN [Suspect]
     Active Substance: METFORMIN HYDROCHLORIDE
  54. OXYCODONE [Suspect]
     Active Substance: OXYCODONE
  55. METRONIDAZOLE [Suspect]
     Active Substance: METRONIDAZOLE
  56. MORPHINE [Suspect]
     Active Substance: MORPHINE
  57. METOPROLOL [Suspect]
     Active Substance: METOPROLOL
  58. MORPHINE [Suspect]
     Active Substance: MORPHINE
  59. OXYCODONE [Suspect]
     Active Substance: OXYCODONE
  60. METRONIDAZOLE [Suspect]
     Active Substance: METRONIDAZOLE
  61. LORAZEPAM [Suspect]
     Active Substance: LORAZEPAM
  62. MORPHINE [Suspect]
     Active Substance: MORPHINE
  63. OXYCODONE [Suspect]
     Active Substance: OXYCODONE
  64. LORAZEPAM [Suspect]
     Active Substance: LORAZEPAM
  65. CALCIUM [Suspect]
     Active Substance: CALCIUM
  66. METOPROLOL [Suspect]
     Active Substance: METOPROLOL
  67. CALCIUM [Suspect]
     Active Substance: CALCIUM
  68. IRON [Suspect]
     Active Substance: IRON

REACTIONS (2)
  - Acute kidney injury [Recovered/Resolved]
  - Gastrooesophageal reflux disease [Not Recovered/Not Resolved]

NARRATIVE: CASE EVENT DATE: 20090101
